FAERS Safety Report 9183645 (Version 1)
Quarter: 2013Q1

REPORT INFORMATION
  Report Type: Spontaneous
  Country: US (occurrence: US)
  Receive Date: 20130322
  Receipt Date: 20130322
  Transmission Date: 20140127
  Serious: No
  Sender: FDA-Public Use
  Company Number: US-BRISTOL-MYERS SQUIBB COMPANY-16572448

PATIENT
  Age: 73 Year
  Sex: Female

DRUGS (1)
  1. ERBITUX [Suspect]
     Indication: THROAT CANCER
     Dosage: LAST DOSE:3MAY2012 ?TOTAL 5DOSES
     Dates: start: 20120405

REACTIONS (3)
  - Cheilitis [Unknown]
  - Dry skin [Unknown]
  - Erythema [Unknown]
